FAERS Safety Report 8988046 (Version 1)
Quarter: 2012Q4

REPORT INFORMATION
  Report Type: Report from Study
  Country: NL (occurrence: NL)
  Receive Date: 20121227
  Receipt Date: 20121227
  Transmission Date: 20130627
  Serious: Yes (Hospitalization)
  Sender: FDA-Public Use
  Company Number: NL-BAXTER-2012BAX027654

PATIENT
  Age: 62 Year
  Sex: Male
  Weight: 99 kg

DRUGS (12)
  1. ENDOXAN I.V., POEDER VOOR OPLOSSING VOOR INJECTIE 200, 500, 1000 MG [Suspect]
     Indication: DIFFUSE LARGE B-CELL LYMPHOMA
     Route: 042
     Dates: start: 20110301
  2. ENDOXAN I.V., POEDER VOOR OPLOSSING VOOR INJECTIE 200, 500, 1000 MG [Suspect]
     Route: 042
     Dates: start: 20110323
  3. RITUXIMAB [Suspect]
     Indication: DIFFUSE LARGE B-CELL LYMPHOMA
     Route: 042
     Dates: start: 20110301
  4. RITUXIMAB [Suspect]
     Route: 042
     Dates: start: 20110323
  5. PREDNISONE [Suspect]
     Indication: DIFFUSE LARGE B-CELL LYMPHOMA
     Route: 048
     Dates: start: 20110301
  6. PREDNISONE [Suspect]
     Route: 048
     Dates: start: 20110323
  7. DOXORUBICIN [Suspect]
     Indication: DIFFUSE LARGE B-CELL LYMPHOMA
     Route: 048
     Dates: start: 20110301
  8. DOXORUBICIN [Suspect]
     Route: 048
     Dates: start: 20110323
  9. VINCRISTINE [Suspect]
     Indication: DIFFUSE LARGE B-CELL LYMPHOMA
     Route: 042
     Dates: start: 20110301
  10. VINCRISTINE [Suspect]
     Route: 042
     Dates: start: 20110323
  11. G-CSF [Suspect]
     Indication: DIFFUSE LARGE B-CELL LYMPHOMA
     Route: 058
     Dates: start: 20110302
  12. G-CSF [Suspect]
     Route: 058
     Dates: start: 20110323

REACTIONS (2)
  - Neutropenia [Recovered/Resolved]
  - Anal abscess [Recovered/Resolved]
